FAERS Safety Report 4415435-0 (Version None)
Quarter: 2004Q3

REPORT INFORMATION
  Report Type: 
  Country: None (occurrence: None)
  Receive Date: 20040729
  Receipt Date: 20040716
  Transmission Date: 20050211
  Serious: Yes (Other)
  Sender: FDA-Public Use
  Company Number: 2004048446

PATIENT
  Sex: Female

DRUGS (3)
  1. SINEQUAN [Suspect]
     Indication: ILL-DEFINED DISORDER
     Dosage: 150 MG (150 MG, 1 IN 1 D)
  2. XYLOCAINE W/ EPINEPHRENE [Suspect]
     Indication: HYPOAESTHESIA ORAL
     Dates: start: 20040716, end: 20040716
  3. ANTIHYPERTENSIVES (ANTIHYPERTENSIVES) [Concomitant]

REACTIONS (9)
  - AGITATION [None]
  - ANXIETY [None]
  - CARDIAC DISORDER [None]
  - CARDIAC FAILURE CONGESTIVE [None]
  - ENDODONTIC PROCEDURE [None]
  - FEELING ABNORMAL [None]
  - HYPERTENSION [None]
  - POST PROCEDURAL COMPLICATION [None]
  - TREMOR [None]
